FAERS Safety Report 19031048 (Version 1)
Quarter: 2021Q1

REPORT INFORMATION
  Report Type: Spontaneous
  Country: US (occurrence: US)
  Receive Date: 20210317
  Receipt Date: 20210317
  Transmission Date: 20210420
  Serious: Yes (Hospitalization)
  Sender: FDA-Public Use
  Company Number: None

PATIENT
  Age: 60 Year

DRUGS (12)
  1. OPSUMIT [Suspect]
     Active Substance: MACITENTAN
     Indication: PULMONARY ARTERIAL HYPERTENSION
     Route: 048
     Dates: start: 20170427
  2. SPIRONOLACTONE. [Suspect]
     Active Substance: SPIRONOLACTONE
  3. LEVOTHYROXINE. [Suspect]
     Active Substance: LEVOTHYROXINE
  4. TYLENOL [Suspect]
     Active Substance: ACETAMINOPHEN
  5. ATORVASTATIN [Suspect]
     Active Substance: ATORVASTATIN
  6. VITAMIN B COMPLEX [Suspect]
     Active Substance: CYANOCOBALAMIN\DEXPANTHENOL\NIACINAMIDE\PYRIDOXINE HYDROCHLORIDE\RIBOFLAVIN 5^-PHOSPHATE SODIUM\THIAMINE HYDROCHLORIDE\VITAMIN B COMPLEX
  7. ADCIRCA [Suspect]
     Active Substance: TADALAFIL
  8. METAMUCIL [Suspect]
     Active Substance: PLANTAGO SEED
  9. STOOL SOFTENER (DOCUSATE) [Suspect]
     Active Substance: DOCUSATE
  10. FUROSEMIDE. [Suspect]
     Active Substance: FUROSEMIDE
  11. FAMOTIDINE. [Suspect]
     Active Substance: FAMOTIDINE
  12. METFORMIN [Suspect]
     Active Substance: METFORMIN HYDROCHLORIDE

REACTIONS (2)
  - Pulmonary arterial pressure increased [None]
  - Condition aggravated [None]

NARRATIVE: CASE EVENT DATE: 20210315
